FAERS Safety Report 20133302 (Version 4)
Quarter: 2022Q2

REPORT INFORMATION
  Report Type: Report from Study
  Country: BR (occurrence: None)
  Receive Date: 20211201
  Receipt Date: 20220531
  Transmission Date: 20220720
  Serious: Yes (Hospitalization)
  Sender: FDA-Public Use
  Company Number: BR-Merck Healthcare KGaA-9283528

PATIENT
  Age: 43 Year
  Sex: Male

DRUGS (10)
  1. REBIF [Suspect]
     Active Substance: INTERFERON BETA-1A
     Indication: Multiple sclerosis
     Dates: start: 20030601, end: 20050325
  2. REBIF [Suspect]
     Active Substance: INTERFERON BETA-1A
     Dates: start: 20050325, end: 20070115
  3. REBIF [Suspect]
     Active Substance: INTERFERON BETA-1A
     Dates: start: 20070117, end: 20110401
  4. REBIF [Suspect]
     Active Substance: INTERFERON BETA-1A
     Dates: start: 20110401, end: 20111107
  5. REBIF [Suspect]
     Active Substance: INTERFERON BETA-1A
     Dates: start: 20111108, end: 20190630
  6. DEPAKENE [Concomitant]
     Active Substance: VALPROIC ACID
     Indication: Product used for unknown indication
  7. WARFARIN SODIUM [Concomitant]
     Active Substance: WARFARIN SODIUM
     Indication: Product used for unknown indication
  8. INVESTIGATIONAL PRODUCT [Concomitant]
     Active Substance: INVESTIGATIONAL PRODUCT
     Indication: COVID-19 immunisation
     Dosage: FIRST DOSE
  9. INVESTIGATIONAL PRODUCT [Concomitant]
     Active Substance: INVESTIGATIONAL PRODUCT
     Dosage: SECOND DOSE
     Dates: start: 202107
  10. COMIRNATY [Concomitant]
     Active Substance: TOZINAMERAN
     Indication: COVID-19 immunisation
     Dosage: THIRD DOSE
     Dates: start: 20211122

REACTIONS (5)
  - Cerebrovascular accident [Not Recovered/Not Resolved]
  - Myocardial infarction [Recovered/Resolved]
  - Gait disturbance [Not Recovered/Not Resolved]
  - Limb discomfort [Not Recovered/Not Resolved]
  - Condition aggravated [Not Recovered/Not Resolved]

NARRATIVE: CASE EVENT DATE: 20030601
